FAERS Safety Report 4691035-2 (Version None)
Quarter: 2005Q2

REPORT INFORMATION
  Report Type: 
  Country: None (occurrence: None)
  Receive Date: 20050615
  Receipt Date: 20050607
  Transmission Date: 20051028
  Serious: Yes (Hospitalization)
  Sender: FDA-Public Use
  Company Number: 2005AP03227

PATIENT
  Age: 69 Year
  Sex: Male

DRUGS (2)
  1. ATACAND [Suspect]
     Indication: HYPERTENSION
     Route: 048
     Dates: start: 20040901, end: 20040911
  2. ATACAND [Suspect]
     Route: 048
     Dates: start: 20040531

REACTIONS (3)
  - BACK PAIN [None]
  - CARDIAC ARREST [None]
  - FATIGUE [None]
